FAERS Safety Report 6493330-3 (Version None)
Quarter: 2009Q4

REPORT INFORMATION
  Report Type: 
  Country: None (occurrence: None)
  Receive Date: 20091214
  Receipt Date: 20091208
  Transmission Date: 20100525
  Serious: Yes (Hospitalization)
  Sender: FDA-Public Use
  Company Number: PL-WYE-H12549609

PATIENT
  Sex: Male
  Weight: 66 kg

DRUGS (8)
  1. TEMSIROLIMUS [Suspect]
     Indication: RENAL CELL CARCINOMA
     Route: 042
     Dates: start: 20090727, end: 20091207
  2. SODIUM CHLORIDE [Concomitant]
     Dosage: UNKNOWN
     Dates: start: 20091207
  3. FENTANYL [Concomitant]
     Indication: PAIN PROPHYLAXIS
     Dosage: UNKNOWN
     Dates: start: 20091207
  4. RANITIDINE [Concomitant]
     Indication: PROPHYLAXIS
     Dosage: UNKNOWN
     Dates: start: 20091207
  5. CEFTAZIDIME [Concomitant]
     Indication: MUCOSAL INFLAMMATION
     Dosage: UNKNOWN
     Dates: start: 20091207
  6. FLUCONAZOLE [Concomitant]
     Indication: MUCOSAL INFLAMMATION
     Dosage: UNKNOWN
     Dates: start: 20091207
  7. BEVACIZUMAB [Suspect]
     Indication: RENAL CELL CARCINOMA
     Route: 042
     Dates: start: 20090727, end: 20091207
  8. ELECTROLYTE SOLUTIONS [Concomitant]
     Dosage: UNKNOWN
     Dates: start: 20091207

REACTIONS (2)
  - HYPERCALCAEMIA [None]
  - RENAL FAILURE [None]
